FAERS Safety Report 9369938 (Version 1)
Quarter: 2013Q2

REPORT INFORMATION
  Report Type: Spontaneous
  Country: CA (occurrence: CA)
  Receive Date: 20130626
  Receipt Date: 20130626
  Transmission Date: 20140414
  Serious: Yes (Hospitalization, Other)
  Sender: FDA-Public Use
  Company Number: CA-PFIZER INC-2013184714

PATIENT
  Age: 63 Year
  Sex: Male

DRUGS (9)
  1. CELEBREX [Suspect]
     Dosage: 100 MG, 1X/DAY
     Route: 048
     Dates: start: 19991008
  2. NITRO-DUR [Concomitant]
     Dosage: UNK
     Route: 062
  3. PLAVIX [Concomitant]
     Dosage: 75 MG, 1X/DAY
  4. ASA [Concomitant]
     Dosage: 81 MG, 1X/DAY
  5. ZOCOR [Concomitant]
     Dosage: 40 MG, 1X/DAY
     Route: 048
  6. LOSEC [Concomitant]
     Dosage: 20 MG, 1X/DAY
     Route: 048
  7. LOPRESSOR [Concomitant]
     Dosage: 25 MG, 2X/DAY
  8. ATIVAN [Concomitant]
     Dosage: 1 MG, 1X/DAY, AT BEDTIME AS NEEDED
  9. METOPROLOL [Concomitant]
     Dosage: 50 MG, UNK

REACTIONS (2)
  - Myocardial infarction [Unknown]
  - Cardiac arrest [Unknown]
